FAERS Safety Report 4621924-6 (Version None)
Quarter: 2005Q1

REPORT INFORMATION
  Report Type: 
  Country: None (occurrence: None)
  Receive Date: 20050329
  Receipt Date: 20050323
  Transmission Date: 20050727
  Serious: Yes (Other)
  Sender: FDA-Public Use
  Company Number: PHNU2005DE01444

PATIENT
  Sex: Male

DRUGS (1)
  1. DIOVAN [Suspect]
     Indication: MYOCARDIAL INFARCTION
     Dosage: 0.5 DF, QD
     Route: 048

REACTIONS (1)
  - TACHYCARDIA [None]
